FAERS Safety Report 8107788-7 (Version None)
Quarter: 2012Q1

REPORT INFORMATION
  Report Type: 
  Country: None (occurrence: None)
  Receive Date: 20120202
  Receipt Date: 20120126
  Transmission Date: 20120608
  Serious: Yes (Other)
  Sender: FDA-Public Use
  Company Number: CH-TEVA-320327ISR

PATIENT
  Sex: Female

DRUGS (3)
  1. TRAZODONE HCL [Suspect]
  2. LITHIUM CARBONATE [Suspect]
  3. FLUOXETINE [Suspect]
     Route: 048

REACTIONS (1)
  - VISUAL IMPAIRMENT [None]
